FAERS Safety Report 9971394 (Version 1)
Quarter: 2014Q1

REPORT INFORMATION
  Report Type: Spontaneous
  Country: US (occurrence: US)
  Receive Date: 20140306
  Receipt Date: 20140306
  Transmission Date: 20141002
  Serious: No
  Sender: FDA-Public Use
  Company Number: US-ABBVIE-13P-163-1150890-00

PATIENT
  Age: 32 Year
  Sex: Male
  Weight: 114.41 kg

DRUGS (3)
  1. HUMIRA [Suspect]
     Indication: CROHN^S DISEASE
     Route: 058
     Dates: start: 201207
  2. PENTASA [Concomitant]
     Indication: CROHN^S DISEASE
  3. CETIRIZINE [Concomitant]
     Indication: SEASONAL ALLERGY

REACTIONS (2)
  - Injection site pain [Recovered/Resolved]
  - Injection site swelling [Recovered/Resolved]
